FAERS Safety Report 9965258 (Version 1)
Quarter: 2014Q1

REPORT INFORMATION
  Report Type: Report from Study
  Country: US (occurrence: US)
  Receive Date: 20140305
  Receipt Date: 20140305
  Transmission Date: 20141002
  Serious: No
  Sender: FDA-Public Use
  Company Number: US-ABBVIE-13P-163-1124143-00

PATIENT
  Age: 64 Year
  Sex: Male

DRUGS (5)
  1. HUMIRA [Suspect]
     Indication: PSORIATIC ARTHROPATHY
  2. SIMVASTATIN [Concomitant]
     Indication: BLOOD CHOLESTEROL INCREASED
     Dosage: AT BEDTIME
  3. BENAZEPRIL [Concomitant]
     Indication: HYPERTENSION
     Dosage: 20/25 MG
  4. VERAPAMIL [Concomitant]
     Indication: HYPERTENSION
     Dosage: AT BEDTIME
  5. IBUPROFEN [Concomitant]
     Indication: PRODUCT USED FOR UNKNOWN INDICATION
     Dosage: 800 MG

REACTIONS (7)
  - Fall [Not Recovered/Not Resolved]
  - Device malfunction [Unknown]
  - Incorrect dose administered [Unknown]
  - Ligament sprain [Not Recovered/Not Resolved]
  - Nerve compression [Not Recovered/Not Resolved]
  - Headache [Not Recovered/Not Resolved]
  - Muscular weakness [Not Recovered/Not Resolved]
